FAERS Safety Report 8833079 (Version 1)
Quarter: 2012Q4

REPORT INFORMATION
  Report Type: 
  Country: CA (occurrence: CA)
  Receive Date: 20121010
  Receipt Date: 20121010
  Transmission Date: 20130627
  Serious: Yes (Hospitalization, Other)
  Sender: FDA-Public Use
  Company Number: CA-NOVOPROD-361470

PATIENT
  Age: 62 Year
  Sex: Female

DRUGS (9)
  1. NOVORAPID [Suspect]
     Indication: DIABETES MELLITUS
     Dosage: 30 IU, qd
     Route: 065
  2. ASPIRIN [Suspect]
  3. LANTUS [Suspect]
     Dosage: solution subcutaneous
     Route: 058
  4. METFORMIN [Suspect]
     Dosage: tablet
     Route: 048
  5. PLAVIX [Suspect]
     Dosage: tablet
     Route: 048
  6. ANGIOTENSIN II ANTAGONISTS [Concomitant]
  7. ANTIHYPERTENSIVES [Concomitant]
  8. HEPARIN SODIUM [Concomitant]
     Dosage: UNK
     Route: 042
  9. LIPID MODIFYING AGENTS [Concomitant]

REACTIONS (3)
  - General physical health deterioration [Unknown]
  - Hepatic neoplasm [Unknown]
  - Upper gastrointestinal haemorrhage [Unknown]
